FAERS Safety Report 4291547-X (Version None)
Quarter: 2004Q1

REPORT INFORMATION
  Report Type: 
  Country: None (occurrence: None)
  Receive Date: 20040210
  Receipt Date: 20040210
  Transmission Date: 20041129
  Serious: No
  Sender: FDA-Public Use
  Company Number: None

PATIENT
  Age: 52 Year
  Sex: Male
  Weight: 65 kg

DRUGS (1)
  1. PEG INTERFERON L-2Q 180 MG [Suspect]
     Indication: HEPATITIS C VIRUS
     Dosage: 180 MG Q WEEK
     Dates: start: 20030103, end: 20030813

REACTIONS (1)
  - RHEUMATOID ARTHRITIS [None]
